FAERS Safety Report 8415790-0 (Version None)
Quarter: 2012Q2

REPORT INFORMATION
  Report Type: 
  Country: None (occurrence: None)
  Receive Date: 20120606
  Receipt Date: 20120530
  Transmission Date: 20120825
  Serious: Yes (Hospitalization)
  Sender: FDA-Public Use
  Company Number: US-BAYER-2011-074734

PATIENT
  Age: 42 Year
  Sex: Female
  Weight: 68.027 kg

DRUGS (19)
  1. CYMBALTA [Concomitant]
     Indication: DEPRESSION
     Dosage: 100 MG, TID
     Dates: start: 20060101
  2. FAMOTIDINE [Concomitant]
     Dosage: 20 MG, UNK
  3. CYMBALTA [Concomitant]
     Indication: PAIN
  4. LYRICA [Concomitant]
     Indication: PAIN
     Dosage: 100 MG, TID
     Dates: start: 20060101
  5. ZONISAMIDE [Concomitant]
     Dosage: 100 MG, 4 QD (INTERPRETED AS DAILY)
  6. YAZ [Suspect]
     Indication: CONTRACEPTION
     Dosage: UNK
     Dates: start: 20071201, end: 20091201
  7. MIRALAX [Concomitant]
     Indication: CONSTIPATION
     Dosage: 3 PK [INTERPRETED AS PACKAGES] PER DAY
     Dates: start: 20050101
  8. LEXAPRO [Concomitant]
     Indication: DEPRESSION
     Dosage: 100 MG, TID
     Dates: start: 20060101
  9. QVAR 40 [Concomitant]
     Indication: DYSPNOEA
     Dosage: 40 MG, UNK
     Dates: start: 20080101
  10. LIDODERM [Concomitant]
     Indication: PAIN
     Dosage: 5% UP TO 5 A DAY
     Dates: start: 20070101
  11. YAZ [Suspect]
     Indication: PREMENSTRUAL SYNDROME
  12. YAZ [Suspect]
  13. TRAMADOL HYDROCHLORIDE [Concomitant]
     Dosage: 50 MG, 5ID, 2 TABS
  14. PANTOPRAZOLE SODIUM [Concomitant]
     Dosage: 40 MG, UNK
  15. OPANA [Concomitant]
     Indication: PAIN
     Dosage: 20 MG, UNK
     Dates: start: 20080101
  16. PREVACID [Concomitant]
     Indication: GASTROOESOPHAGEAL REFLUX DISEASE
     Dosage: 30 MG, UNK
     Dates: start: 20080101
  17. AMITIZA [Concomitant]
     Indication: CONSTIPATION
     Dosage: 24 MG, BID
     Dates: start: 20080101
  18. IBUPROFEN [Concomitant]
     Indication: PAIN
     Dosage: INCREASE TO 600 MG [EVERY] 6 HOURS
     Dates: start: 20080204
  19. ZONEGRAN [Concomitant]
     Dosage: 400 MG, BID

REACTIONS (4)
  - INJURY [None]
  - ANXIETY [None]
  - PAIN [None]
  - CHOLECYSTITIS [None]
